FAERS Safety Report 7917524-2 (Version None)
Quarter: 2011Q4

REPORT INFORMATION
  Report Type: 
  Country: None (occurrence: None)
  Receive Date: 20111116
  Receipt Date: 20111115
  Transmission Date: 20120403
  Serious: Yes (Other)
  Sender: FDA-Public Use
  Company Number: US-ROCHE-792849

PATIENT
  Sex: Female
  Weight: 81.72 kg

DRUGS (6)
  1. MOTRIN [Concomitant]
  2. LOESTRIN FE 1/20 [Concomitant]
  3. ACCUTANE [Suspect]
     Indication: ACNE
     Dates: start: 19990101, end: 20001231
  4. MICROGESTIN 1.5/30 [Concomitant]
     Indication: CONTRACEPTION
  5. IBUPROFEN [Concomitant]
  6. IBUPROFEN (ADVIL) [Concomitant]

REACTIONS (3)
  - COLONIC POLYP [None]
  - INFLAMMATORY BOWEL DISEASE [None]
  - CROHN'S DISEASE [None]
